FAERS Safety Report 18158963 (Version 1)
Quarter: 2020Q3

REPORT INFORMATION
  Report Type: Spontaneous
  Country: US (occurrence: US)
  Receive Date: 20200817
  Receipt Date: 20200817
  Transmission Date: 20201103
  Serious: Yes (Other)
  Sender: FDA-Public Use
  Company Number: US-SUN PHARMACEUTICAL INDUSTRIES LTD-2020R1-256861

PATIENT
  Age: 68 Year
  Sex: Male

DRUGS (2)
  1. DOCETAXEL. [Suspect]
     Active Substance: DOCETAXEL
     Indication: CHEMOTHERAPY
     Dosage: 15 MILLIGRAM/SQ. METER, WEEKLY
     Route: 065
  2. CETUXIMAB. [Suspect]
     Active Substance: CETUXIMAB
     Indication: CHEMOTHERAPY
     Dosage: 400 MILLIGRAM/SQ. /250 MG/M2 SUBSEQUENT DOSESMETER, WEEKLY
     Route: 065

REACTIONS (3)
  - Dermatitis [Recovered/Resolved]
  - Lacrimation increased [Recovered/Resolved]
  - Conjunctival hyperaemia [Recovered/Resolved]
